FAERS Safety Report 7453158-4 (Version None)
Quarter: 2011Q2

REPORT INFORMATION
  Report Type: 
  Country: None (occurrence: None)
  Receive Date: 20110502
  Receipt Date: 20101123
  Transmission Date: 20111010
  Serious: No
  Sender: FDA-Public Use
  Company Number: US-ASTRAZENECA-2010SE55782

PATIENT
  Sex: Female
  Weight: 98 kg

DRUGS (2)
  1. NEXIUM [Suspect]
     Indication: ULCER
     Route: 048
     Dates: start: 20100413
  2. PRILOSEC [Suspect]
     Dosage: 20 TO 40 MG
     Route: 048

REACTIONS (3)
  - HAEMOGLOBIN DECREASED [None]
  - PEPTIC ULCER [None]
  - DRUG INEFFECTIVE [None]
